FAERS Safety Report 4783025-6 (Version None)
Quarter: 2005Q3

REPORT INFORMATION
  Report Type: 
  Country: None (occurrence: None)
  Receive Date: 20050928
  Receipt Date: 20050928
  Transmission Date: 20060218
  Serious: Yes (Other)
  Sender: FDA-Public Use
  Company Number: None

PATIENT
  Age: 33 Year
  Sex: Male
  Weight: 74.8435 kg

DRUGS (1)
  1. HYDROGEN PEROXIDE SOLUTION [Suspect]
     Indication: FATIGUE
     Dates: start: 20050503, end: 20050503

REACTIONS (6)
  - ARTHRITIS [None]
  - BURSITIS [None]
  - INFLAMMATION [None]
  - NEURITIS [None]
  - VASCULITIS [None]
  - WRONG DRUG ADMINISTERED [None]
